FAERS Safety Report 7153355-1 (Version None)
Quarter: 2010Q4

REPORT INFORMATION
  Report Type: 
  Country: None (occurrence: None)
  Receive Date: 20101213
  Receipt Date: 20101206
  Transmission Date: 20110411
  Serious: Yes (Other)
  Sender: FDA-Public Use
  Company Number: JP-ROCHE-747624

PATIENT
  Age: 80 Year
  Sex: Female

DRUGS (2)
  1. CEFTRIAXONE SODIUM [Suspect]
     Route: 042
  2. CEFTRIAXONE SODIUM [Suspect]
     Dosage: DURATION OF THERAPY: 16 DAYS
     Route: 042

REACTIONS (5)
  - AZOTAEMIA [None]
  - CHOLECYSTITIS [None]
  - CHOLELITHIASIS [None]
  - CHOREOATHETOSIS [None]
  - LOSS OF CONSCIOUSNESS [None]
